FAERS Safety Report 5603243-4 (Version None)
Quarter: 2008Q1

REPORT INFORMATION
  Report Type: 
  Country: None (occurrence: None)
  Receive Date: 20080125
  Receipt Date: 20080115
  Transmission Date: 20080703
  Serious: Yes (Life-Threatening, Hospitalization, Other)
  Sender: FDA-Public Use
  Company Number: US-PFIZER INC-2008006052

PATIENT
  Sex: Female
  Weight: 95.454 kg

DRUGS (5)
  1. CHANTIX [Suspect]
     Indication: SMOKING CESSATION THERAPY
     Dosage: FREQ:EVERY DAY
     Dates: start: 20070101, end: 20080107
  2. EFFEXOR [Concomitant]
  3. KLONOPIN [Concomitant]
  4. SEROQUEL [Concomitant]
  5. TRAZODONE HCL [Concomitant]

REACTIONS (6)
  - DEPRESSION [None]
  - HEPATIC ENZYME INCREASED [None]
  - INTENTIONAL SELF-INJURY [None]
  - SMOKER [None]
  - SUICIDAL IDEATION [None]
  - SUICIDE ATTEMPT [None]
